FAERS Safety Report 7269899-8 (Version None)
Quarter: 2011Q1

REPORT INFORMATION
  Report Type: 
  Country: None (occurrence: None)
  Receive Date: 20110202
  Receipt Date: 20110118
  Transmission Date: 20110831
  Serious: Yes (Life-Threatening, Hospitalization, Other)
  Sender: FDA-Public Use
  Company Number: US-ELI_LILLY_AND_COMPANY-US201005004470

PATIENT
  Sex: Female

DRUGS (10)
  1. ASPIRIN [Concomitant]
     Dosage: UNK, DAILY (1/D)
  2. FORTEO [Suspect]
     Indication: OSTEOPOROSIS
     Dosage: 20 UG, DAILY (1/D)
     Dates: end: 20091211
  3. SENNA [Concomitant]
     Dosage: UNK, AS NEEDED
  4. C-VITAMIN [Concomitant]
     Dosage: UNK, AS NEEDED
  5. METAMUCIL-2 [Concomitant]
     Dosage: UNK, AS NEEDED
  6. EFFEXOR [Concomitant]
     Dosage: 75 MG, DAILY (1/D)
  7. DILTIAZEM [Concomitant]
     Dosage: 120 MG, 2/D
  8. CALCIUM WITH VITAMIN D [Concomitant]
  9. STOOL SOFTENER [Concomitant]
     Dosage: UNK, AS NEEDED
  10. OMEPRAZOLE [Concomitant]
     Dosage: 20 MG, 2/D

REACTIONS (6)
  - CRYING [None]
  - GRIEF REACTION [None]
  - OESOPHAGEAL PERFORATION [None]
  - FOREIGN BODY [None]
  - OESOPHAGEAL STENOSIS [None]
  - GASTROOESOPHAGEAL REFLUX DISEASE [None]
